FAERS Safety Report 21694149 (Version 1)
Quarter: 2022Q4

REPORT INFORMATION
  Report Type: Spontaneous
  Country: US (occurrence: None)
  Receive Date: 20221206
  Receipt Date: 20221206
  Transmission Date: 20230112
  Serious: Yes (unspecified)
  Sender: FDA-Public Use
  Company Number: None

PATIENT
  Age: 48 Year
  Sex: Female
  Weight: 74 kg

DRUGS (1)
  1. DOXERCALCIFEROL [Suspect]
     Active Substance: DOXERCALCIFEROL
     Indication: Hyperparathyroidism secondary
     Dosage: FREQUENCY : 3 TIMES A WEEK;?
     Route: 040
     Dates: start: 20221129, end: 20221129

REACTIONS (5)
  - Haemodialysis [None]
  - Chest discomfort [None]
  - Dyspnoea [None]
  - Anxiety [None]
  - Vomiting [None]

NARRATIVE: CASE EVENT DATE: 20221129
